FAERS Safety Report 5228430-9 (Version None)
Quarter: 2007Q1

REPORT INFORMATION
  Report Type: 
  Country: None (occurrence: None)
  Receive Date: 20070131
  Receipt Date: 20070131
  Transmission Date: 20070707
  Serious: No
  Sender: FDA-Public Use
  Company Number: None

PATIENT
  Age: 60 Year
  Sex: Female
  Weight: 68 kg

DRUGS (5)
  1. HALOPERIDOL [Suspect]
     Indication: AGITATION
     Dosage: 2 MG Q 4 HRS PRN ANXIETY IV
     Route: 042
     Dates: start: 20060727
  2. ARIPIRAZOLE [Concomitant]
  3. LORATADINE [Concomitant]
  4. CLONAZEPAM [Concomitant]
  5. SINEMET [Concomitant]

REACTIONS (2)
  - BLEPHAROSPASM [None]
  - DYSKINESIA [None]
